FAERS Safety Report 6348188-X (Version None)
Quarter: 2009Q3

REPORT INFORMATION
  Report Type: 
  Country: None (occurrence: None)
  Receive Date: 20090910
  Receipt Date: 20090901
  Transmission Date: 20100115
  Serious: Yes (Death, Hospitalization)
  Sender: FDA-Public Use
  Company Number: US-AMGEN-QUU362629

PATIENT
  Sex: Female
  Weight: 84 kg

DRUGS (6)
  1. ENBREL [Suspect]
     Indication: RHEUMATOID ARTHRITIS
     Route: 058
     Dates: start: 20000119, end: 20080429
  2. AZULFIDINE [Concomitant]
  3. NORCO [Concomitant]
  4. PLAQUENIL [Concomitant]
  5. LEFLUNOMIDE [Concomitant]
  6. UNSPECIFIED STEROIDS [Concomitant]

REACTIONS (3)
  - DEATH [None]
  - METASTATIC NEOPLASM [None]
  - SINUSITIS [None]
